FAERS Safety Report 16235176 (Version 1)
Quarter: 2019Q2

REPORT INFORMATION
  Report Type: Spontaneous
  Country: JP (occurrence: JP)
  Receive Date: 20190424
  Receipt Date: 20190424
  Transmission Date: 20190711
  Serious: Yes (Disabling, Other)
  Sender: FDA-Public Use
  Company Number: JP-PFIZER INC-2019165780

PATIENT
  Age: 51 Year
  Sex: Male

DRUGS (1)
  1. RHEUMATREX [Suspect]
     Active Substance: METHOTREXATE SODIUM
     Dosage: UNK
     Dates: start: 201401, end: 201412

REACTIONS (5)
  - Metabolic disorder [Unknown]
  - Encephalopathy [Unknown]
  - Hypopituitarism [Unknown]
  - Speech disorder [Unknown]
  - Lymphoproliferative disorder [Unknown]
